FAERS Safety Report 9229853 (Version 2)
Quarter: 2013Q2

REPORT INFORMATION
  Report Type: Spontaneous
  Country: FR (occurrence: FR)
  Receive Date: 20130415
  Receipt Date: 20130502
  Transmission Date: 20140414
  Serious: Yes (Hospitalization)
  Sender: FDA-Public Use
  Company Number: FR-RANBAXY-2013RR-66987

PATIENT
  Age: 29 Year
  Sex: Male

DRUGS (4)
  1. AMOXICILLINE/ACIDE CLAVULANIQUE [Suspect]
     Indication: GINGIVAL OEDEMA
     Dosage: UNK
     Route: 048
     Dates: start: 20121008, end: 20121016
  2. FLAGYL [Suspect]
     Indication: GINGIVAL OEDEMA
     Dosage: UNK
     Route: 048
     Dates: start: 20121010, end: 20121016
  3. SOLUPRED [Suspect]
     Indication: GINGIVAL OEDEMA
     Dosage: UNK
     Route: 048
     Dates: start: 20121010, end: 20121016
  4. TRIFLUCAN [Concomitant]
     Indication: PRODUCT USED FOR UNKNOWN INDICATION
     Dosage: UNK
     Route: 065
     Dates: start: 20121012, end: 20121025

REACTIONS (8)
  - Agranulocytosis [Recovered/Resolved]
  - Rash vesicular [Unknown]
  - Pyrexia [Unknown]
  - Splenomegaly [Unknown]
  - Lymphopenia [Unknown]
  - Normochromic normocytic anaemia [Unknown]
  - Inflammation [Recovering/Resolving]
  - Weight decreased [Unknown]
